FAERS Safety Report 4472854-4 (Version None)
Quarter: 2004Q4

REPORT INFORMATION
  Report Type: 
  Country: None (occurrence: None)
  Receive Date: 20041012
  Receipt Date: 20041012
  Transmission Date: 20050328
  Serious: Yes (Death)
  Sender: FDA-Public Use
  Company Number: None

PATIENT
  Age: 55 Year
  Sex: Male
  Weight: 72 kg

DRUGS (1)
  1. METFORMIN HCL [Suspect]
     Indication: DIABETES MELLITUS NON-INSULIN-DEPENDENT
     Dosage: 1000MG   BID  ORAL
     Route: 048

REACTIONS (11)
  - ABDOMINAL PAIN [None]
  - BACK PAIN [None]
  - CHILLS [None]
  - CONFUSIONAL STATE [None]
  - DECREASED APPETITE [None]
  - DYSPNOEA [None]
  - FEELING ABNORMAL [None]
  - MENTAL STATUS CHANGES [None]
  - NAUSEA [None]
  - RETCHING [None]
  - VOMITING [None]
